FAERS Safety Report 5833426-X (Version None)
Quarter: 2008Q3

REPORT INFORMATION
  Report Type: 
  Country: None (occurrence: None)
  Receive Date: 20080805
  Receipt Date: 20080724
  Transmission Date: 20090109
  Serious: Yes (Hospitalization)
  Sender: FDA-Public Use
  Company Number: JP-ASTRAZENECA-2008SE03718

PATIENT
  Age: 74 Year
  Sex: Male
  Weight: 49 kg

DRUGS (9)
  1. BLOPRESS [Suspect]
     Indication: CARDIAC FAILURE CHRONIC
     Route: 048
     Dates: start: 20070410
  2. HALFDIGOXIN KY [Concomitant]
     Indication: CARDIAC FAILURE CHRONIC
     Route: 048
     Dates: start: 20080210
  3. BAYASPIRIN [Concomitant]
     Indication: MYOCARDIAL INFARCTION
     Route: 048
     Dates: start: 20070205
  4. RANITAC [Concomitant]
     Indication: GASTRIC ULCER
     Route: 048
     Dates: start: 20070205
  5. SEKIROID [Concomitant]
     Indication: ASTHMA
     Route: 048
     Dates: start: 20070207
  6. SINGULAIR [Concomitant]
     Indication: ASTHMA
     Route: 048
     Dates: start: 20070207
  7. LIVALO [Concomitant]
     Indication: HYPERCHOLESTEROLAEMIA
     Route: 048
     Dates: start: 20070205
  8. WARFARIN SODIUM [Concomitant]
     Indication: ATRIAL FIBRILLATION
     Route: 048
     Dates: start: 20070210
  9. MYSLEE [Concomitant]
     Indication: INSOMNIA
     Route: 048
     Dates: start: 20070710, end: 20080204

REACTIONS (1)
  - CARDIAC FAILURE [None]
